FAERS Safety Report 10577932 (Version 1)
Quarter: 2014Q4

REPORT INFORMATION
  Report Type: Not Available
  Country: FR (occurrence: FR)
  Receive Date: 20141112
  Receipt Date: 20141112
  Transmission Date: 20150529
  Serious: Yes (Hospitalization)
  Sender: FDA-Public Use
  Company Number: FR-BEH-2014046138

PATIENT
  Age: 65 Year
  Sex: Female

DRUGS (8)
  1. ALL OTHER THERAPEUTIC PRODUCTS [Suspect]
     Active Substance: UNSPECIFIED INGREDIENT
     Indication: IMMUNE THROMBOCYTOPENIC PURPURA
  2. INEXIUM [Concomitant]
     Active Substance: ESOMEPRAZOLE
  3. ZELITREX [Concomitant]
     Active Substance: VALACYCLOVIR HYDROCHLORIDE
  4. PRIVIGEN [Suspect]
     Active Substance: HUMAN IMMUNOGLOBULIN G
     Indication: IMMUNE THROMBOCYTOPENIC PURPURA
     Dosage: STARTED FROM MAY-2014, DOSE: 65 G/COURSE
  5. IMUREL [Suspect]
     Active Substance: AZATHIOPRINE SODIUM
     Indication: RHEUMATOID ARTHRITIS
     Dosage: FROM ??-AUG-2013 TO 02-OCT-2014
  6. PLAQUENIL [Concomitant]
     Active Substance: HYDROXYCHLOROQUINE SULFATE
  7. MABTHERA [Concomitant]
     Active Substance: RITUXIMAB
     Dosage: 2 COURSES ON 26-JUN-2014 AND ON 10-JUL-2014
  8. CORTANCYL [Concomitant]
     Active Substance: PREDNISONE

REACTIONS (9)
  - Venoocclusive disease [Not Recovered/Not Resolved]
  - Splenomegaly [Unknown]
  - Hepatic pain [Unknown]
  - Varices oesophageal [Unknown]
  - Candida infection [Unknown]
  - Ascites [Unknown]
  - Abdominal pain upper [Unknown]
  - Hepatomegaly [Unknown]
  - Cholestasis [Unknown]

NARRATIVE: CASE EVENT DATE: 20140919
